FAERS Safety Report 17620906 (Version 1)
Quarter: 2020Q2

REPORT INFORMATION
  Report Type: Spontaneous
  Country: CN (occurrence: CN)
  Receive Date: 20200403
  Receipt Date: 20200403
  Transmission Date: 20200713
  Serious: Yes (Other)
  Sender: FDA-Public Use
  Company Number: CN-PFIZER INC-2020135958

PATIENT
  Age: 89 Year
  Sex: Male
  Weight: 48 kg

DRUGS (10)
  1. ACETYLCYSTEINE. [Concomitant]
     Active Substance: ACETYLCYSTEINE
     Indication: PRODUCTIVE COUGH
     Dosage: 3 ML, 2X/DAY (INHALATION)
     Dates: start: 20200313, end: 20200316
  2. AMBROXOL [Concomitant]
     Active Substance: AMBROXOL
     Indication: ANTIINFLAMMATORY THERAPY
     Dosage: UNK
     Dates: start: 20200313, end: 20200316
  3. LANG MING [Concomitant]
     Indication: ANTIINFLAMMATORY THERAPY
     Dosage: 0.3 G, 1X/DAY
     Route: 041
     Dates: start: 20200313, end: 20200316
  4. PREDNISONE ACETATE [Suspect]
     Active Substance: PREDNISONE ACETATE
     Indication: ANTIINFLAMMATORY THERAPY
     Dosage: 40 MG, 1X/DAY
     Route: 048
     Dates: start: 20200313, end: 20200316
  5. PIPERACILLIN AND TAZOBACTAM [Concomitant]
     Active Substance: PIPERACILLIN SODIUM\TAZOBACTAM SODIUM
     Indication: ANTI-INFECTIVE THERAPY
     Dosage: 4.5 G, 3X/DAY
     Route: 041
     Dates: start: 20200313, end: 20200316
  6. SOLU-MEDROL [Suspect]
     Active Substance: METHYLPREDNISOLONE SODIUM SUCCINATE
     Indication: ASTHMA
  7. PREDNISONE ACETATE [Suspect]
     Active Substance: PREDNISONE ACETATE
     Indication: ASTHMA
  8. AMBROXOL [Concomitant]
     Active Substance: AMBROXOL
     Indication: ASTHMA
  9. SOLU-MEDROL [Suspect]
     Active Substance: METHYLPREDNISOLONE SODIUM SUCCINATE
     Indication: ANTIINFLAMMATORY THERAPY
     Dosage: 40 MG, 1X/DAY
     Route: 041
     Dates: start: 20200313, end: 20200316
  10. LANG MING [Concomitant]
     Indication: ASTHMA

REACTIONS (4)
  - Dysphoria [Recovering/Resolving]
  - Fatigue [Unknown]
  - Illusion [Recovering/Resolving]
  - Agitation [Recovering/Resolving]

NARRATIVE: CASE EVENT DATE: 20200316
